FAERS Safety Report 8463309-0 (Version None)
Quarter: 2012Q2

REPORT INFORMATION
  Report Type: 
  Country: None (occurrence: None)
  Receive Date: 20120625
  Receipt Date: 20120614
  Transmission Date: 20120825
  Serious: Yes (Hospitalization, Other)
  Sender: FDA-Public Use
  Company Number: US-ACTELION-A-US2012-64919

PATIENT

DRUGS (1)
  1. TRACLEER [Suspect]
     Indication: PULMONARY ARTERIAL HYPERTENSION
     Dosage: UNK
     Route: 048
     Dates: start: 20060214

REACTIONS (5)
  - COLON CANCER [None]
  - ANAEMIA [None]
  - ASTHENIA [None]
  - CORONARY ARTERIAL STENT INSERTION [None]
  - SURGERY [None]
